FAERS Safety Report 8298288-2 (Version None)
Quarter: 2012Q2

REPORT INFORMATION
  Report Type: 
  Country: None (occurrence: None)
  Receive Date: 20120419
  Receipt Date: 20120127
  Transmission Date: 20120825
  Serious: Yes (Death, Hospitalization)
  Sender: FDA-Public Use
  Company Number: US-BRISTOL-MYERS SQUIBB COMPANY-16349078

PATIENT
  Age: 58 Year
  Sex: Male

DRUGS (6)
  1. VICODIN [Concomitant]
     Dates: start: 20110701, end: 20120111
  2. METHYLPREDNISOLONE [Concomitant]
     Dates: start: 20120110
  3. CIALIS [Concomitant]
     Dates: start: 20111127
  4. COMPAZINE [Concomitant]
     Dates: start: 20111125
  5. YERVOY [Suspect]
     Indication: METASTATIC MALIGNANT MELANOMA
     Dosage: 1 DOSE
     Route: 042
     Dates: start: 20111222
  6. PEPCID [Concomitant]
     Dates: start: 20111219

REACTIONS (3)
  - ACUTE HEPATIC FAILURE [None]
  - AUTOIMMUNE HEPATITIS [None]
  - THROMBOCYTOPENIA [None]
